FAERS Safety Report 24052182 (Version 1)
Quarter: 2024Q3

REPORT INFORMATION
  Report Type: Other
  Country: US (occurrence: US)
  Receive Date: 20240704
  Receipt Date: 20240704
  Transmission Date: 20241016
  Serious: Yes (unspecified)
  Sender: Compliance Insight
  Company Number: US-Compliance Insight, Inc.-2158835

PATIENT
  Age: 63 Year
  Sex: Male

DRUGS (1)
  1. DIMETHYL SULFONE [Suspect]
     Active Substance: DIMETHYL SULFONE
     Route: 031

REACTIONS (1)
  - Eye irritation [Not Recovered/Not Resolved]

NARRATIVE: CASE EVENT DATE: 20240614
